FAERS Safety Report 12105505 (Version 2)
Quarter: 2016Q1

REPORT INFORMATION
  Report Type: Spontaneous
  Country: FR (occurrence: FR)
  Receive Date: 20160223
  Receipt Date: 20160308
  Transmission Date: 20160526
  Serious: Yes (Hospitalization)
  Sender: FDA-Public Use
  Company Number: FR-PFIZER INC-2016096477

PATIENT
  Age: 68 Year
  Sex: Female

DRUGS (11)
  1. INLYTA [Suspect]
     Active Substance: AXITINIB
     Dosage: 4 MG X2, DAILY
     Route: 048
     Dates: start: 20151231, end: 20160206
  2. METFORMIN [Concomitant]
     Active Substance: METFORMIN HYDROCHLORIDE
     Dosage: 500 MG X2, DAILY
     Dates: end: 20160207
  3. ZOLPIDEM [Concomitant]
     Active Substance: ZOLPIDEM\ZOLPIDEM TARTRATE
     Dosage: 1 DF, DAILY
  4. NORSET [Concomitant]
     Active Substance: MIRTAZAPINE
     Dosage: 2 DF, DAILY
  5. LOPERAMIDE [Concomitant]
     Active Substance: LOPERAMIDE
     Dosage: 1 DF X3, DAILY
  6. INLYTA [Suspect]
     Active Substance: AXITINIB
     Indication: METASTATIC RENAL CELL CARCINOMA
     Dosage: 10 MG, 1X/DAY
     Route: 048
     Dates: start: 201507, end: 20150922
  7. INLYTA [Suspect]
     Active Substance: AXITINIB
     Dosage: 3 MG X2, DAILY
     Route: 048
  8. ENALAPRIL [Concomitant]
     Active Substance: ENALAPRIL
     Dosage: 20 MG, DAILY
  9. RACECADOTRIL [Concomitant]
     Active Substance: RACECADOTRIL
     Dosage: 1 DF X3, DAILY
  10. INLYTA [Suspect]
     Active Substance: AXITINIB
     Dosage: 4 MG X2, DAILY
     Route: 048
     Dates: start: 20150928
  11. LEVOTHYROX [Concomitant]
     Active Substance: LEVOTHYROXINE
     Dosage: 0.5 DF, DAILY

REACTIONS (3)
  - Acute kidney injury [Recovered/Resolved]
  - Dehydration [Recovered/Resolved]
  - Diarrhoea [Recovered/Resolved]

NARRATIVE: CASE EVENT DATE: 201507
